FAERS Safety Report 11079130 (Version 1)
Quarter: 2015Q2

REPORT INFORMATION
  Report Type: Spontaneous
  Country: JP (occurrence: None)
  Receive Date: 20150428
  Receipt Date: 20150428
  Transmission Date: 20150821
  Serious: Yes (Death)
  Sender: FDA-Public Use
  Company Number: FK201501914

PATIENT
  Age: 40 Year
  Sex: Female

DRUGS (5)
  1. DOCETAXEL (MANUFACTURER UNKNOWN) (DOCETAXEL) (DOCETAXEL) [Suspect]
     Active Substance: DOCETAXEL
     Indication: CERVIX CARCINOMA STAGE II
  2. CARBOPLATIN (MANUFACTURER UNKNOWN) (CARBOPLATIN)  (CARBOPLATIN) [Suspect]
     Active Substance: CARBOPLATIN
     Indication: CERVIX CARCINOMA STAGE II
  3. NEDAPLATIN (NEDAPLATIN) (NEDAPLATIN) [Suspect]
     Active Substance: NEDAPLATIN
     Indication: CERVIX CARCINOMA STAGE II
  4. IRINOTECAN (MANUFACTURER UNKNOWN) (IRINOTECAN) (IRINOTECAN) [Suspect]
     Active Substance: IRINOTECAN
     Indication: CERVIX CARCINOMA STAGE II
  5. CISPLATIN (MANUFACTURER UNKNOWN) (CISPLATIN) (CISPLATIN) [Suspect]
     Active Substance: CISPLATIN
     Indication: CERVIX CARCINOMA STAGE II

REACTIONS (10)
  - Febrile neutropenia [None]
  - Acute myeloid leukaemia [None]
  - Multi-organ failure [None]
  - No therapeutic response [None]
  - Abdominal pain [None]
  - General physical health deterioration [None]
  - Refusal of treatment by patient [None]
  - Urinary bladder haemorrhage [None]
  - Renal impairment [None]
  - Infection [None]
